FAERS Safety Report 21760513 (Version 3)
Quarter: 2022Q4

REPORT INFORMATION
  Report Type: Report from Study
  Country: US (occurrence: US)
  Receive Date: 20221221
  Receipt Date: 20221229
  Transmission Date: 20230113
  Serious: No
  Sender: FDA-Public Use
  Company Number: US-002147023-NVSC2022US292813

PATIENT
  Sex: Female

DRUGS (2)
  1. GLATOPA [Suspect]
     Active Substance: GLATIRAMER ACETATE
     Indication: Multiple sclerosis
     Dosage: 40 MG, Q3W
     Route: 058
  2. GLATOPA [Suspect]
     Active Substance: GLATIRAMER ACETATE
     Dosage: UNK
     Route: 065
     Dates: start: 20221214

REACTIONS (8)
  - Movement disorder [Unknown]
  - Gait disturbance [Unknown]
  - Injection site erythema [Recovering/Resolving]
  - Injection site swelling [Unknown]
  - Injection site pain [Unknown]
  - Pain [Unknown]
  - Injection site induration [Unknown]
  - Injection site inflammation [Unknown]
